FAERS Safety Report 11053306 (Version 1)
Quarter: 2015Q2

REPORT INFORMATION
  Report Type: Spontaneous
  Country: US (occurrence: US)
  Receive Date: 20150421
  Receipt Date: 20150421
  Transmission Date: 20150821
  Serious: No
  Sender: FDA-Public Use
  Company Number: US-PFIZER INC-2015135084

PATIENT
  Age: 56 Year
  Sex: Female

DRUGS (1)
  1. EFFEXOR [Suspect]
     Active Substance: VENLAFAXINE HYDROCHLORIDE
     Dosage: UNK

REACTIONS (8)
  - Nausea [Unknown]
  - Headache [Unknown]
  - Dizziness [Unknown]
  - Movement disorder [Unknown]
  - Malaise [Unknown]
  - Confusional state [Unknown]
  - Sleep disorder [Unknown]
  - Drug withdrawal syndrome [Unknown]
